FAERS Safety Report 7215985-8 (Version None)
Quarter: 2011Q1

REPORT INFORMATION
  Report Type: 
  Country: None (occurrence: None)
  Receive Date: 20110107
  Receipt Date: 20101230
  Transmission Date: 20110831
  Serious: Yes (Hospitalization)
  Sender: FDA-Public Use
  Company Number: US-JNJFOC-20101104243

PATIENT
  Sex: Male

DRUGS (4)
  1. NIASPAN [Concomitant]
  2. WELCHOL [Concomitant]
  3. CRESTOR [Concomitant]
  4. STELARA [Suspect]
     Indication: PSORIASIS
     Route: 058

REACTIONS (4)
  - ATAXIA [None]
  - BACK PAIN [None]
  - HEADACHE [None]
  - DIPLOPIA [None]
